FAERS Safety Report 16570799 (Version 1)
Quarter: 2019Q3

REPORT INFORMATION
  Report Type: Spontaneous
  Country: US (occurrence: US)
  Receive Date: 20190712
  Receipt Date: 20190712
  Transmission Date: 20191004
  Serious: Yes (Disabling)
  Sender: FDA-Public Use
  Company Number: None

PATIENT
  Age: 38 Year
  Sex: Female
  Weight: 103.5 kg

DRUGS (7)
  1. BORON [Concomitant]
     Active Substance: BORON
  2. POTASSIUM [Concomitant]
     Active Substance: POTASSIUM
  3. MAGNESIUM [Concomitant]
     Active Substance: MAGNESIUM
  4. OMEPRAZOLE. [Concomitant]
     Active Substance: OMEPRAZOLE
  5. FLAXSEED [Concomitant]
     Active Substance: FLAX SEED
  6. CIPROFLOXACIN. [Suspect]
     Active Substance: CIPROFLOXACIN
     Indication: BACTERIAL INFECTION
     Dates: start: 20181228, end: 20181231
  7. SELENIUM [Concomitant]
     Active Substance: SELENIUM

REACTIONS (40)
  - Gastrointestinal disorder [None]
  - Depressed mood [None]
  - Eye pain [None]
  - Vision blurred [None]
  - Dysphonia [None]
  - Chest pain [None]
  - Amnesia [None]
  - Blindness [None]
  - Asthenia [None]
  - Tremor [None]
  - Bone pain [None]
  - Gait disturbance [None]
  - Mental disorder [None]
  - Neck pain [None]
  - Pain [None]
  - Panic attack [None]
  - Photophobia [None]
  - Heart rate increased [None]
  - Musculoskeletal pain [None]
  - Diarrhoea [None]
  - Crying [None]
  - Visual impairment [None]
  - Pain in extremity [None]
  - Burning sensation [None]
  - Muscle spasms [None]
  - Abdominal pain [None]
  - Tongue dry [None]
  - Feeling abnormal [None]
  - Tendonitis [None]
  - Toothache [None]
  - Crepitations [None]
  - Muscle twitching [None]
  - Muscle atrophy [None]
  - Headache [None]
  - Gastrooesophageal reflux disease [None]
  - Hyperhidrosis [None]
  - Heart rate irregular [None]
  - Head discomfort [None]
  - Tooth fracture [None]
  - Throat irritation [None]

NARRATIVE: CASE EVENT DATE: 20181228
